FAERS Safety Report 12678307 (Version 1)
Quarter: 2016Q3

REPORT INFORMATION
  Report Type: Spontaneous
  Country: NL (occurrence: NL)
  Receive Date: 20160823
  Receipt Date: 20160823
  Transmission Date: 20161109
  Serious: Yes (Life-Threatening)
  Sender: FDA-Public Use
  Company Number: NL-MYLANLABS-2016M1034394

PATIENT

DRUGS (1)
  1. MORFINE HCL RETARD MYLAN 10 MG, TABLETTEN MET VERLENGDE AFGIFTE [Suspect]
     Active Substance: MORPHINE HYDROCHLORIDE
     Indication: PAIN
     Dosage: 2 KEER PER DAG, 1 STUK(S). AFFELACTISCHESHOCK NA INNAME VERVANGEND MERK OP 28 JULI 2016
     Route: 048
     Dates: start: 20160704, end: 20160728

REACTIONS (8)
  - Pruritus [Recovered/Resolved]
  - Therapeutic response unexpected [Recovered/Resolved]
  - Dyspnoea [Recovered/Resolved]
  - Blood pressure increased [Recovered/Resolved]
  - Nausea [Recovered/Resolved]
  - Urticaria [Recovered/Resolved]
  - Skin warm [Recovered/Resolved]
  - Heart rate increased [Recovered/Resolved]

NARRATIVE: CASE EVENT DATE: 20160728
